FAERS Safety Report 8388118-2 (Version None)
Quarter: 2012Q2

REPORT INFORMATION
  Report Type: 
  Country: None (occurrence: None)
  Receive Date: 20120525
  Receipt Date: 20120516
  Transmission Date: 20120825
  Serious: Yes (Other)
  Sender: FDA-Public Use
  Company Number: US-ASTRAZENECA-2010SE40189

PATIENT
  Age: 56 Year
  Sex: Female

DRUGS (13)
  1. SEROQUEL XR [Suspect]
     Route: 048
  2. SEROQUEL XR [Suspect]
     Indication: DEPRESSION
     Route: 048
     Dates: start: 20100101
  3. SEROQUEL XR [Suspect]
     Route: 048
  4. SEROQUEL XR [Suspect]
     Route: 048
  5. SEROQUEL XR [Suspect]
     Route: 048
  6. SEROQUEL XR [Suspect]
     Route: 048
  7. ADVIL [Concomitant]
     Indication: HEADACHE
     Dosage: AS REQUIRED
  8. SEROQUEL XR [Suspect]
     Indication: MOOD SWINGS
     Route: 048
     Dates: start: 20100101
  9. SEROQUEL XR [Suspect]
     Indication: BIPOLAR DISORDER
     Route: 048
     Dates: start: 20100101
  10. SEROQUEL XR [Suspect]
     Route: 048
  11. SEROQUEL XR [Suspect]
     Route: 048
  12. SEROQUEL XR [Suspect]
     Route: 048
  13. SEROQUEL XR [Suspect]
     Route: 048

REACTIONS (15)
  - INTENTIONAL DRUG MISUSE [None]
  - INSOMNIA [None]
  - SUICIDAL IDEATION [None]
  - MIGRAINE [None]
  - GLUCOSE TOLERANCE IMPAIRED [None]
  - DEPRESSION [None]
  - WITHDRAWAL SYNDROME [None]
  - PAIN [None]
  - MENTAL DISORDER [None]
  - MALAISE [None]
  - ADVERSE EVENT [None]
  - FEELING ABNORMAL [None]
  - THINKING ABNORMAL [None]
  - ASTHENIA [None]
  - FALL [None]
